FAERS Safety Report 10023820 (Version 1)
Quarter: 2014Q1

REPORT INFORMATION
  Report Type: Spontaneous
  Country: US (occurrence: None)
  Receive Date: 20140318
  Receipt Date: 20140318
  Transmission Date: 20141002
  Serious: Yes (Other)
  Sender: FDA-Public Use
  Company Number: SYM-2014-18415

PATIENT
  Sex: Female

DRUGS (1)
  1. ZYCLARA [Suspect]
     Indication: PRECANCEROUS CELLS PRESENT
     Dosage: APPLY TOPICALLY TO FACE AND CHEST DAILY, TOPICAL
     Route: 061
     Dates: start: 201402, end: 201402

REACTIONS (3)
  - Gastrointestinal pain [None]
  - Peritonitis [None]
  - Pancreatitis [None]
